FAERS Safety Report 7145872-5 (Version None)
Quarter: 2010Q4

REPORT INFORMATION
  Report Type: 
  Country: None (occurrence: None)
  Receive Date: 20101208
  Receipt Date: 20101202
  Transmission Date: 20110411
  Serious: Yes (Hospitalization)
  Sender: FDA-Public Use
  Company Number: B0687159A

PATIENT
  Age: 47 Year
  Sex: Female
  Weight: 94.8 kg

DRUGS (3)
  1. ONDANSETRON [Suspect]
     Indication: POSTOPERATIVE CARE
     Route: 042
     Dates: start: 20101119, end: 20101119
  2. BENDROFLUMETHIAZIDE [Concomitant]
     Route: 048
  3. LERCANIDIPINE [Concomitant]
     Route: 048

REACTIONS (1)
  - DYSKINESIA [None]
